FAERS Safety Report 9413470 (Version 1)
Quarter: 2013Q3

REPORT INFORMATION
  Report Type: Spontaneous
  Country: US (occurrence: US)
  Receive Date: 20130722
  Receipt Date: 20130722
  Transmission Date: 20140515
  Serious: Yes (Hospitalization)
  Sender: FDA-Public Use
  Company Number: US-B.I. PHARMACEUTICALS,INC./RIDGEFIELD-2013-BI-20990BP

PATIENT
  Age: 79 Year
  Sex: Male
  Weight: 88 kg

DRUGS (6)
  1. PRADAXA [Suspect]
     Dosage: 150 MG
     Route: 048
     Dates: end: 20130715
  2. ALLOPURINOL [Concomitant]
  3. ASPIRIN [Concomitant]
  4. METFORMIN [Concomitant]
  5. NEXIUM [Concomitant]
  6. AMIODARONE [Concomitant]

REACTIONS (1)
  - Gastrointestinal haemorrhage [Not Recovered/Not Resolved]
